FAERS Safety Report 8875206 (Version 1)
Quarter: 2012Q4

REPORT INFORMATION
  Report Type: 
  Country: US (occurrence: US)
  Receive Date: 20121026
  Receipt Date: 20121026
  Transmission Date: 20130627
  Serious: No
  Sender: FDA-Public Use
  Company Number: US-AMGEN-USASP2012044860

PATIENT
  Sex: Female
  Weight: 58.96 kg

DRUGS (6)
  1. ENBREL [Suspect]
     Indication: PRODUCT USED FOR UNKNOWN INDICATION
     Dosage: 50 mg, 2 times/wk
  2. NECON 7/7/7 [Concomitant]
  3. LORATADINE [Concomitant]
     Dosage: 10 mg, UNK
  4. VITAMIN [Concomitant]
  5. MULTIVITAMIN                       /00097801/ [Concomitant]
  6. ADVIL                              /00044201/ [Concomitant]

REACTIONS (2)
  - Injection site erythema [Unknown]
  - Injection site warmth [Unknown]
